FAERS Safety Report 17723538 (Version 1)
Quarter: 2020Q2

REPORT INFORMATION
  Report Type: Spontaneous
  Country: US (occurrence: US)
  Receive Date: 20200429
  Receipt Date: 20200429
  Transmission Date: 20200714
  Serious: Yes (Other)
  Sender: FDA-Public Use
  Company Number: US-JNJFOC-20200427917

PATIENT
  Sex: Female

DRUGS (1)
  1. VISINE UNSPECIFIED [Suspect]
     Active Substance: TETRAHYDROZOLINE HYDROCHLORIDE
     Indication: PRODUCT USED FOR UNKNOWN INDICATION
     Route: 048

REACTIONS (3)
  - Poisoning deliberate [Unknown]
  - Incorrect route of product administration [Unknown]
  - Bradycardia [Unknown]
